FAERS Safety Report 5191605-1 (Version None)
Quarter: 2006Q4

REPORT INFORMATION
  Report Type: 
  Country: None (occurrence: None)
  Receive Date: 20061219
  Receipt Date: 20061204
  Transmission Date: 20070319
  Serious: Yes (Death)
  Sender: FDA-Public Use
  Company Number: AZAIT200600397

PATIENT
  Age: 66 Year
  Sex: Female
  Weight: 59 kg

DRUGS (4)
  1. VIDAZA [Suspect]
     Indication: MYELODYSPLASTIC SYNDROME
     Dosage: 60 MG/M2 (100 MG, DAILY X 8 DAYS, WITHOUT WEEKEND DOSING), SUBCUTANEOUS
     Route: 058
     Dates: start: 20061002, end: 20061011
  2. VALPROIC ACID [Suspect]
     Indication: MYELODYSPLASTIC SYNDROME
     Dosage: 900 MG (300 MG), ORAL
     Route: 048
     Dates: start: 20061002, end: 20061011
  3. DANAZOLE (DANAZOL) [Concomitant]
  4. TRETINOIN [Suspect]
     Indication: MYELODYSPLASTIC SYNDROME
     Dosage: 60 MG (30 MG), ORAL
     Route: 048
     Dates: start: 20061002, end: 20061011

REACTIONS (11)
  - CEREBRAL ISCHAEMIA [None]
  - COAGULOPATHY [None]
  - COMA HEPATIC [None]
  - CONDITION AGGRAVATED [None]
  - HEPATIC FAILURE [None]
  - HEPATIC NECROSIS [None]
  - HEPATOTOXICITY [None]
  - INTERNATIONAL NORMALISED RATIO INCREASED [None]
  - NEUTROPHIL COUNT DECREASED [None]
  - PNEUMONIA [None]
  - WHITE BLOOD CELL COUNT DECREASED [None]
